FAERS Safety Report 5671627-4 (Version None)
Quarter: 2008Q1

REPORT INFORMATION
  Report Type: 
  Country: None (occurrence: None)
  Receive Date: 20080313
  Receipt Date: 20080229
  Transmission Date: 20080703
  Serious: Yes (Life-Threatening, Hospitalization)
  Sender: FDA-Public Use
  Company Number: GXKR2008IE02203

PATIENT
  Age: 34 Year
  Sex: Male

DRUGS (5)
  1. METHADONE HCL [Suspect]
     Dosage: 105 MG/DAY DISCHARGE MEDICATION
  2. FLURAZEPAM [Suspect]
     Dosage: 10 DF
  3. ATAZANAVIR SULFATE [Suspect]
     Indication: ANTIRETROVIRAL THERAPY
     Dosage: 300 MG/DAY
  4. RITONAVIR(RITONAVIR) [Suspect]
     Indication: ANTIRETROVIRAL THERAPY
     Dosage: 100 MG/DAY
  5. TRUVADA (EMTRICITABINE W/TENOFOVIR DISOPROXIL FUMARATE) (EMTRICITABINE [Concomitant]

REACTIONS (15)
  - BLOOD BILIRUBIN INCREASED [None]
  - BLOOD PRESSURE DIASTOLIC DECREASED [None]
  - CIRCULATORY COLLAPSE [None]
  - DRUG INTERACTION [None]
  - HYPERHIDROSIS [None]
  - INCORRECT DOSE ADMINISTERED [None]
  - LOSS OF CONSCIOUSNESS [None]
  - MIOSIS [None]
  - RALES [None]
  - RESPIRATORY RATE INCREASED [None]
  - SINUS BRADYCARDIA [None]
  - SOMNOLENCE [None]
  - TORSADE DE POINTES [None]
  - TREATMENT NONCOMPLIANCE [None]
  - VENTRICULAR TACHYCARDIA [None]
